FAERS Safety Report 19183024 (Version 2)
Quarter: 2021Q2

REPORT INFORMATION
  Report Type: Report from Study
  Country: US (occurrence: US)
  Receive Date: 20210426
  Receipt Date: 20210518
  Transmission Date: 20210717
  Serious: No
  Sender: FDA-Public Use
  Company Number: US-ORGANON-O2104USA001082

PATIENT
  Age: 22 Year
  Sex: Female
  Weight: 122.4 kg

DRUGS (1)
  1. IMPLANON [Suspect]
     Active Substance: ETONOGESTREL
     Indication: CONTRACEPTION
     Dosage: 1IMPLANT, STRENGTH: 68 MG
     Route: 059
     Dates: start: 20181004, end: 20201118

REACTIONS (3)
  - Amenorrhoea [Not Recovered/Not Resolved]
  - Implant site erythema [Recovered/Resolved]
  - Implant site swelling [Not Recovered/Not Resolved]

NARRATIVE: CASE EVENT DATE: 2020
